FAERS Safety Report 15255851 (Version 1)
Quarter: 2018Q3

REPORT INFORMATION
  Report Type: Spontaneous
  Country: US (occurrence: US)
  Receive Date: 20180718
  Receipt Date: 20180718
  Transmission Date: 20181010
  Serious: Yes (Disabling, Other)
  Sender: FDA-Public Use
  Company Number: None

PATIENT
  Age: 56 Year
  Sex: Female
  Weight: 76.5 kg

DRUGS (1)
  1. CIPROFLOXACIN. [Suspect]
     Active Substance: CIPROFLOXACIN
     Indication: FEBRILE NEUTROPENIA
     Dates: start: 20090815, end: 20091030

REACTIONS (9)
  - Toothache [None]
  - Arthralgia [None]
  - Gait disturbance [None]
  - Tendon pain [None]
  - Loss of personal independence in daily activities [None]
  - Myalgia [None]
  - Fatigue [None]
  - Mitochondrial cytopathy [None]
  - Neuropathy peripheral [None]

NARRATIVE: CASE EVENT DATE: 20091001
